FAERS Safety Report 17356491 (Version 3)
Quarter: 2020Q1

REPORT INFORMATION
  Report Type: Report from Study
  Country: AU (occurrence: AU)
  Receive Date: 20200131
  Receipt Date: 20200226
  Transmission Date: 20200409
  Serious: Yes (Hospitalization)
  Sender: FDA-Public Use
  Company Number: AU-REGENERON PHARMACEUTICALS, INC.-2020-15408

PATIENT

DRUGS (14)
  1. DULCOLAX (BISACODYL) [Concomitant]
     Active Substance: BISACODYL
     Indication: CONSTIPATION
     Dosage: 2.5 MG, AS NECESSARY
     Route: 048
  2. PARAFFIN [Concomitant]
     Active Substance: PARAFFIN
     Indication: EYELID PTOSIS
     Dosage: 1 APPLICATION, QD
     Route: 047
     Dates: start: 20190329
  3. CHLORSIG [Concomitant]
     Active Substance: CHLORAMPHENICOL
     Indication: BLEPHAROPLASTY
     Dosage: 1 APPLICATION, TID
     Route: 047
     Dates: start: 20191221
  4. CEMIPLIMAB [Suspect]
     Active Substance: CEMIPLIMAB
     Indication: SKIN SQUAMOUS CELL CARCINOMA METASTATIC
     Dosage: 600 MG, Q4W
     Route: 042
     Dates: start: 20181227, end: 20191031
  5. ATENOLOL. [Concomitant]
     Active Substance: ATENOLOL
     Indication: HYPERTENSION
     Dosage: 50 MG, QD
     Route: 048
     Dates: start: 2003
  6. POLY TEARS [Concomitant]
     Indication: EYELID PTOSIS
     Dosage: 1 GTT, AS NECESSARY
     Route: 047
     Dates: start: 20190329
  7. CANNABIS [Concomitant]
     Active Substance: CANNABIS SATIVA SUBSP. INDICA TOP
     Indication: FACIAL PAIN
     Dosage: 1 APPLICATION, AS NECESSARY
     Route: 061
     Dates: start: 201810
  8. ARISTOCORT                         /00031901/ [Concomitant]
     Indication: RASH
     Dosage: 1 APPLICATION, AS NECESSARY
     Route: 061
     Dates: start: 20191003
  9. PHENYLEPHRINE [Concomitant]
     Active Substance: PHENYLEPHRINE HYDROCHLORIDE
     Indication: OPHTHALMOLOGICAL EXAMINATION
     Dosage: 1 GTT, AS NECESSARY
     Route: 047
     Dates: start: 20190621
  10. TROPICAMIDE. [Concomitant]
     Active Substance: TROPICAMIDE
     Indication: OPHTHALMOLOGICAL EXAMINATION
     Dosage: 1 GTT, AS NECESSARY
     Route: 047
     Dates: start: 20190527
  11. AMITRIPTYLINE [Concomitant]
     Active Substance: AMITRIPTYLINE
     Indication: SALIVARY HYPERSECRETION
     Dosage: 25 MG, QD
     Route: 048
     Dates: start: 20190613
  12. PARACETAMOL [Concomitant]
     Active Substance: ACETAMINOPHEN
     Indication: FACIAL PAIN
     Dosage: 1 G, AS NECESSARY
     Route: 048
     Dates: start: 20190326
  13. PERINDOPRIL [Concomitant]
     Active Substance: PERINDOPRIL
     Indication: HYPERTENSION
     Dosage: 4 MG, QD
     Route: 048
     Dates: start: 20190327
  14. OXYCODONE [Concomitant]
     Active Substance: OXYCODONE
     Indication: FACIAL PAIN
     Dosage: 5 MG, AS NECESSARY
     Route: 048
     Dates: start: 201712

REACTIONS (1)
  - Arthralgia [Not Recovered/Not Resolved]

NARRATIVE: CASE EVENT DATE: 20200119
